FAERS Safety Report 6252291-2 (Version None)
Quarter: 2009Q3

REPORT INFORMATION
  Report Type: 
  Country: None (occurrence: None)
  Receive Date: 20090701
  Receipt Date: 20090624
  Transmission Date: 20100115
  Serious: Yes (Other)
  Sender: FDA-Public Use
  Company Number: US-ASTRAZENECA-2009UW17417

PATIENT
  Age: 67 Year
  Sex: Female

DRUGS (1)
  1. CRESTOR [Suspect]
     Route: 048
     Dates: start: 20081001

REACTIONS (4)
  - DEVICE BREAKAGE [None]
  - FALL [None]
  - FEMUR FRACTURE [None]
  - THERAPEUTIC RESPONSE UNEXPECTED [None]
